FAERS Safety Report 5179604-7 (Version None)
Quarter: 2006Q4

REPORT INFORMATION
  Report Type: 
  Country: None (occurrence: None)
  Receive Date: 20061211
  Receipt Date: 20061130
  Transmission Date: 20070319
  Serious: Yes (Other)
  Sender: FDA-Public Use
  Company Number: 2006138697

PATIENT
  Age: 59 Year
  Sex: Male

DRUGS (6)
  1. LIPITOR [Suspect]
     Indication: BLOOD CHOLESTEROL
     Dosage: 40 MG (40 MG, 1 IN 1 D)
     Dates: start: 20060801
  2. LIPITOR [Suspect]
     Indication: BLOOD CHOLESTEROL INCREASED
     Dosage: 40 MG (40 MG, 1 IN 1 D)
     Dates: start: 20060801
  3. LIPITOR [Suspect]
     Indication: BLOOD TRIGLYCERIDES
     Dosage: 40 MG (40 MG, 1 IN 1 D)
     Dates: start: 20060801
  4. LOPID [Suspect]
     Indication: BLOOD TRIGLYCERIDES
     Dosage: 1200 MG (600 MG, 1 IN 2 D)
     Dates: start: 20060801
  5. LISINOPRIL [Concomitant]
  6. ATENOLOL [Concomitant]

REACTIONS (2)
  - BLOOD CHOLESTEROL INCREASED [None]
  - BLOOD TRIGLYCERIDES INCREASED [None]
